FAERS Safety Report 6422647-3 (Version None)
Quarter: 2009Q4

REPORT INFORMATION
  Report Type: 
  Country: None (occurrence: None)
  Receive Date: 20091102
  Receipt Date: 20091023
  Transmission Date: 20100525
  Serious: Yes (Other)
  Sender: FDA-Public Use
  Company Number: US-ALLERGAN-0912686US

PATIENT
  Age: 50 Year
  Sex: Female
  Weight: 53.968 kg

DRUGS (28)
  1. BOTOX [Suspect]
     Indication: TORTICOLLIS
     Dosage: 150 UNITS, SINGLE
     Route: 030
     Dates: start: 20001228, end: 20001228
  2. BOTOX [Suspect]
     Dosage: AT LEAST 50 UNITS
     Route: 030
     Dates: start: 20010101, end: 20010101
  3. BOTOX [Suspect]
     Dosage: 150 UNK, SINGLE
     Route: 030
     Dates: start: 20010806, end: 20010806
  4. UNSPECIFIED PAIN MEDICATIONS [Concomitant]
     Dosage: UNK
  5. CLONAZEPAM [Concomitant]
     Indication: ESSENTIAL TREMOR
     Dosage: 0.5 MG, BID
  6. CLONAZEPAM [Concomitant]
     Dosage: 0.5 MG, TID
  7. CLONAZEPAM [Concomitant]
     Dosage: 1 MG, TID
  8. TENORMIN [Concomitant]
     Indication: ESSENTIAL TREMOR
     Dosage: 1 MG, TID
  9. PREMARIN [Concomitant]
     Dosage: 0.625 MG, QD
  10. ATENOLOL [Concomitant]
  11. EXCEDRIN (MIGRAINE) [Concomitant]
  12. MAXALT [Concomitant]
     Indication: HEADACHE
  13. MAXALT [Concomitant]
     Indication: MIGRAINE
  14. KLONOPIN [Concomitant]
     Dosage: 0.5 MG, BID
  15. PCN [Concomitant]
  16. FLAXSEED OIL [Concomitant]
  17. VITAMIN E [Concomitant]
  18. NAPROSYN [Concomitant]
     Indication: ARTHRALGIA
     Dosage: 500 MG, BID
  19. MOTRIN [Concomitant]
     Dosage: 800 MG, UNK
  20. VICODIN [Concomitant]
  21. VICODIN [Concomitant]
     Dosage: 1/2 TAB, QD
     Route: 048
  22. PROVERA [Concomitant]
     Dosage: UNK
  23. PROGESTERONE [Concomitant]
  24. MULTIPLE VITAMINS [Concomitant]
  25. CALCIUM [Concomitant]
  26. DIFLUNISAL [Concomitant]
     Indication: PAIN
     Dosage: 500 MG, BID
  27. DIAZEPAM [Concomitant]
     Indication: MUSCLE RELAXANT THERAPY
     Dosage: 5 MG, QD
  28. DIAZEPAM [Concomitant]
     Indication: TREMOR

REACTIONS (8)
  - BONE ATROPHY [None]
  - INJECTION SITE PAIN [None]
  - LIMB DEFORMITY [None]
  - MULTIPLE MYELOMA [None]
  - OVERDOSE [None]
  - SPONDYLOARTHROPATHY [None]
  - THERAPEUTIC RESPONSE DECREASED [None]
  - URINARY TRACT INFECTION [None]
